FAERS Safety Report 12369227 (Version 3)
Quarter: 2016Q4

REPORT INFORMATION
  Report Type: Report from Study
  Country: US (occurrence: US)
  Receive Date: 20160513
  Receipt Date: 20161107
  Transmission Date: 20170207
  Serious: Yes (Other)
  Sender: FDA-Public Use
  Company Number: PHEH2016US011843

PATIENT
  Age: 24 Year
  Sex: Female

DRUGS (5)
  1. NEXIUM I.V. [Concomitant]
     Active Substance: ESOMEPRAZOLE SODIUM
     Indication: PRODUCT USED FOR UNKNOWN INDICATION
     Dosage: UNK
     Route: 065
  2. GILENYA [Suspect]
     Active Substance: FINGOLIMOD HYDROCHLORIDE
     Indication: MULTIPLE SCLEROSIS
     Dosage: 0.5 MG, QD
     Route: 048
     Dates: start: 20160505
  3. VITAMIN D3 [Concomitant]
     Active Substance: CHOLECALCIFEROL
     Indication: PRODUCT USED FOR UNKNOWN INDICATION
     Dosage: 1 DF, QD (30 CAPSULES, 11 REFILLS)
     Route: 048
     Dates: start: 20160129
  4. PREDNISONE. [Concomitant]
     Active Substance: PREDNISONE
     Indication: PRODUCT USED FOR UNKNOWN INDICATION
     Dosage: 4 DF (AM) FOR 4 DAYS, 3 DF (AM) FOR 4 DAYS, 2 DF (AM) FOR 4 DAYS, 1 DF FOR 4 DAYS
     Route: 065
     Dates: start: 20160202
  5. VITAMIN D [Concomitant]
     Active Substance: CHOLECALCIFEROL
     Indication: VITAMIN D DEFICIENCY
     Dosage: UNK
     Route: 065

REACTIONS (6)
  - Gastroenteritis viral [Unknown]
  - Lymphocyte count decreased [Unknown]
  - Monocyte percentage increased [Unknown]
  - Leukopenia [Unknown]
  - Nasopharyngitis [Unknown]
  - Neutrophil count decreased [Unknown]

NARRATIVE: CASE EVENT DATE: 20160719
